FAERS Safety Report 6321817-2 (Version None)
Quarter: 2009Q3

REPORT INFORMATION
  Report Type: 
  Country: None (occurrence: None)
  Receive Date: 20090821
  Receipt Date: 20090821
  Transmission Date: 20100115
  Serious: Yes (Other)
  Sender: FDA-Public Use
  Company Number: None

PATIENT
  Age: 48 Year
  Sex: Female
  Weight: 80 kg

DRUGS (1)
  1. LEVETIRACETAM [Suspect]
     Indication: CONVULSION
     Dosage: 250MG 1 QID 2 QHS

REACTIONS (3)
  - DIZZINESS [None]
  - NAUSEA [None]
  - PRODUCT SUBSTITUTION ISSUE [None]
